FAERS Safety Report 6375337-X (Version None)
Quarter: 2009Q3

REPORT INFORMATION
  Report Type: 
  Country: None (occurrence: None)
  Receive Date: 20090924
  Receipt Date: 20090917
  Transmission Date: 20100115
  Serious: Yes (Other)
  Sender: FDA-Public Use
  Company Number: B0594691A

PATIENT
  Age: 57 Year
  Sex: Female

DRUGS (3)
  1. AUGMENTIN '125' [Suspect]
     Indication: DENTAL OPERATION
     Dosage: 2000MG PER DAY
     Route: 048
     Dates: start: 20090902, end: 20090906
  2. NAPROXEN SODIUM [Suspect]
     Indication: DENTAL OPERATION
     Dosage: 1100MG PER DAY
     Route: 048
     Dates: start: 20090902, end: 20090906
  3. RANITIDINE [Concomitant]
     Indication: DRUG USE FOR UNKNOWN INDICATION

REACTIONS (1)
  - DERMATITIS [None]
